FAERS Safety Report 7631052-3 (Version None)
Quarter: 2011Q3

REPORT INFORMATION
  Report Type: 
  Country: None (occurrence: None)
  Receive Date: 20110715
  Receipt Date: 20110707
  Transmission Date: 20111222
  Serious: Yes (Other)
  Sender: FDA-Public Use
  Company Number: KR-ACCORD-009774

PATIENT
  Age: 23 Year
  Sex: Male

DRUGS (1)
  1. MITOMYCIN [Suspect]

REACTIONS (6)
  - OFF LABEL USE [None]
  - VISUAL ACUITY REDUCED [None]
  - CORNEAL HYPERTROPHY [None]
  - ASTIGMATISM [None]
  - FIBROSIS [None]
  - CORNEAL SCAR [None]
